FAERS Safety Report 16063881 (Version 1)
Quarter: 2019Q1

REPORT INFORMATION
  Report Type: Spontaneous
  Country: NL (occurrence: NL)
  Receive Date: 20190312
  Receipt Date: 20190312
  Transmission Date: 20190418
  Serious: Yes (Other)
  Sender: FDA-Public Use
  Company Number: NL-FERA PHARMACEUTICALS, LLC-2019PRG00160

PATIENT
  Age: 73 Year
  Sex: Male

DRUGS (2)
  1. DICLOFENAC [Concomitant]
     Active Substance: DICLOFENAC
     Indication: PAIN
     Dosage: 50 MG, 3X/DAY
     Route: 065
  2. DEXAMETHASONE. [Suspect]
     Active Substance: DEXAMETHASONE
     Indication: HYPERSENSITIVITY
     Dosage: 0.5 MG, 1X/DAY
     Route: 048

REACTIONS (1)
  - Retinal haemorrhage [Recovering/Resolving]
